FAERS Safety Report 4762596-X (Version None)
Quarter: 2005Q3

REPORT INFORMATION
  Report Type: 
  Country: None (occurrence: None)
  Receive Date: 20050907
  Receipt Date: 20050829
  Transmission Date: 20060218
  Serious: Yes (Other)
  Sender: FDA-Public Use
  Company Number: CA-GLAXOSMITHKLINE-A0572455A

PATIENT
  Age: 36 Year
  Sex: Male

DRUGS (4)
  1. COMBIVIR [Suspect]
     Indication: DRUG USE FOR UNKNOWN INDICATION
     Route: 048
  2. GABAPENTIN [Concomitant]
     Route: 048
  3. KALETRA [Concomitant]
  4. RABEPRAZOLE SODIUM [Concomitant]

REACTIONS (4)
  - AMNESIA [None]
  - CONFUSIONAL STATE [None]
  - CONVULSION [None]
  - MEDICATION ERROR [None]
